FAERS Safety Report 4376851-9 (Version None)
Quarter: 2004Q2

REPORT INFORMATION
  Report Type: 
  Country: None (occurrence: None)
  Receive Date: 20040609
  Receipt Date: 20040311
  Transmission Date: 20050107
  Serious: Yes (Other)
  Sender: FDA-Public Use
  Company Number: PHEH2004US01630

PATIENT
  Age: 58 Year
  Sex: Female
  Weight: 63.9 kg

DRUGS (4)
  1. GLEEVEC [Suspect]
     Indication: CHRONIC MYELOID LEUKAEMIA
     Dosage: 100 MG, QID, ORAL
     Route: 048
     Dates: start: 20030701, end: 20030801
  2. GLEEVEC [Suspect]
     Indication: CHRONIC MYELOID LEUKAEMIA
     Dosage: 300 + 400 MG, QOD, ORAL
     Route: 048
     Dates: start: 20030901
  3. ALLOPURINOL [Concomitant]
  4. CALCIUM SANDOZ (NCH) (CALCIUM LACTATE GLUCONATE, CALCIUM CARBONATE) SL [Concomitant]

REACTIONS (7)
  - CHILLS [None]
  - PAPILLOEDEMA [None]
  - PLATELET COUNT DECREASED [None]
  - PYREXIA [None]
  - VISION BLURRED [None]
  - VISUAL DISTURBANCE [None]
  - VITREOUS HAEMORRHAGE [None]
